FAERS Safety Report 5929917-3 (Version None)
Quarter: 2008Q3

REPORT INFORMATION
  Report Type: 
  Country: None (occurrence: None)
  Receive Date: 20080930
  Receipt Date: 20080703
  Transmission Date: 20090109
  Serious: Yes (Other)
  Sender: FDA-Public Use
  Company Number: 173747USA

PATIENT
  Sex: Female

DRUGS (1)
  1. SIMVASTATIN [Suspect]
     Dosage: ORAL
     Route: 048

REACTIONS (3)
  - COUGH [None]
  - DYSPNOEA [None]
  - PHARYNGEAL OEDEMA [None]
